FAERS Safety Report 24731750 (Version 1)
Quarter: 2024Q4

REPORT INFORMATION
  Report Type: Spontaneous
  Country: US (occurrence: None)
  Receive Date: 20241212
  Receipt Date: 20241212
  Transmission Date: 20250115
  Serious: Yes (Disabling)
  Sender: Public
  Company Number: None

PATIENT
  Age: 62 Year
  Sex: Male
  Weight: 92.7 kg

DRUGS (4)
  1. PROPARACAINE [Suspect]
     Active Substance: PROPARACAINE
     Indication: Foreign body in eye
     Dosage: OTHER FREQUENCY : ONCE TO LEFT EYE;?
     Route: 047
     Dates: start: 20240505, end: 20240505
  2. AMLODIPINE [Concomitant]
     Active Substance: AMLODIPINE BESYLATE
  3. HYDROCHLOROTHIAZIDE [Concomitant]
     Active Substance: HYDROCHLOROTHIAZIDE
  4. LOSARTAN [Concomitant]
     Active Substance: LOSARTAN

REACTIONS (5)
  - Tinnitus [None]
  - Dizziness [None]
  - Defaecation urgency [None]
  - Nausea [None]
  - Vomiting [None]

NARRATIVE: CASE EVENT DATE: 20240505
